FAERS Safety Report 24769553 (Version 1)
Quarter: 2024Q4

REPORT INFORMATION
  Report Type: Spontaneous
  Country: US (occurrence: None)
  Receive Date: 20241223
  Receipt Date: 20241223
  Transmission Date: 20250115
  Serious: Yes (Death)
  Sender: Public
  Company Number: None

PATIENT
  Age: 61 Year
  Sex: Male

DRUGS (1)
  1. BIKTARVY [Suspect]
     Active Substance: BICTEGRAVIR SODIUM\EMTRICITABINE\TENOFOVIR ALAFENAMIDE FUMARATE
     Indication: HIV infection
     Dosage: 50/200/25 MG DAILY ORAL
     Route: 048
     Dates: start: 20241121, end: 20241210

REACTIONS (5)
  - Septic shock [None]
  - Cardiogenic shock [None]
  - Acute kidney injury [None]
  - Ischaemic hepatitis [None]
  - HIV test positive [None]

NARRATIVE: CASE EVENT DATE: 20241210
